FAERS Safety Report 4762709-X (Version None)
Quarter: 2005Q3

REPORT INFORMATION
  Report Type: 
  Country: None (occurrence: None)
  Receive Date: 20050901
  Receipt Date: 20050615
  Transmission Date: 20060218
  Serious: No
  Sender: FDA-Public Use
  Company Number: FABR-11142

PATIENT
  Age: 45 Year
  Sex: Male
  Weight: 58.9676 kg

DRUGS (1)
  1. FABRAZYME [Suspect]
     Indication: FABRY'S DISEASE
     Dosage: 66 MG Q2WKS IV
     Route: 042
     Dates: start: 20031217

REACTIONS (2)
  - SINUSITIS [None]
  - UPPER RESPIRATORY TRACT INFECTION [None]
